FAERS Safety Report 6482288-9 (Version None)
Quarter: 2009Q4

REPORT INFORMATION
  Report Type: 
  Country: None (occurrence: None)
  Receive Date: 20091208
  Receipt Date: 20090417
  Transmission Date: 20100525
  Serious: No
  Sender: FDA-Public Use
  Company Number: US-AMGEN-KDL343490

PATIENT
  Sex: Female

DRUGS (1)
  1. ENBREL [Suspect]
     Indication: ARTHRITIS
     Route: 058
     Dates: start: 20080320

REACTIONS (5)
  - EYE INFECTION [None]
  - INSOMNIA [None]
  - NECK PAIN [None]
  - OROPHARYNGEAL PAIN [None]
  - VISION BLURRED [None]
